FAERS Safety Report 19191971 (Version 1)
Quarter: 2021Q2

REPORT INFORMATION
  Report Type: Spontaneous
  Country: BR (occurrence: BR)
  Receive Date: 20210428
  Receipt Date: 20210428
  Transmission Date: 20210717
  Serious: Yes (Other)
  Sender: FDA-Public Use
  Company Number: BR-BAYER-2021-131841

PATIENT
  Age: 54 Year
  Sex: Female

DRUGS (2)
  1. STIVARGA [Suspect]
     Active Substance: REGORAFENIB
     Dosage: 40 MG, QD
     Route: 048
     Dates: start: 20200310, end: 202005
  2. STIVARGA [Suspect]
     Active Substance: REGORAFENIB
     Dosage: 120 MG, QD
     Route: 048
     Dates: start: 202005

REACTIONS (6)
  - Metastases to lymph nodes [None]
  - Pruritus [None]
  - Neoplasm progression [None]
  - Palmar-plantar erythrodysaesthesia syndrome [None]
  - Onycholysis [None]
  - Off label use [None]

NARRATIVE: CASE EVENT DATE: 202004
